FAERS Safety Report 18133874 (Version 7)
Quarter: 2020Q4

REPORT INFORMATION
  Report Type: Report from Study
  Country: JP (occurrence: JP)
  Receive Date: 20200811
  Receipt Date: 20201211
  Transmission Date: 20210113
  Serious: Yes (Hospitalization, Other)
  Sender: FDA-Public Use
  Company Number: JP-ASTELLAS-2020JP011118

PATIENT
  Age: 59 Year
  Sex: Male

DRUGS (19)
  1. SOLU-MEDROL [Concomitant]
     Active Substance: METHYLPREDNISOLONE SODIUM SUCCINATE
     Dates: start: 20200730
  2. LANSOPRAZOLE. [Concomitant]
     Active Substance: LANSOPRAZOLE
     Indication: OESOPHAGITIS
     Route: 048
     Dates: start: 20200724
  3. MYSER [DIFLUPREDNATE] [Concomitant]
     Indication: ERYTHEMA
     Dosage: ADEQUATE DOSE, AS NEEDED
     Route: 061
     Dates: start: 20200720
  4. RESTAMIN KOWA [Concomitant]
     Indication: PRURITUS
     Dosage: ADEQUATE DOSE, AS NEEDED
     Route: 061
     Dates: start: 20200720
  5. SOLU-MEDROL [Concomitant]
     Active Substance: METHYLPREDNISOLONE SODIUM SUCCINATE
     Indication: ERYTHEMA
     Route: 042
     Dates: start: 20200724
  6. CEFAZOLIN SODIUM. [Concomitant]
     Active Substance: CEFAZOLIN SODIUM
     Indication: BACTERAEMIA
     Route: 042
     Dates: start: 20200805
  7. BILANOA [Concomitant]
     Active Substance: BILASTINE
     Indication: PRURITUS
     Route: 048
     Dates: start: 20200718
  8. AZUNOL GARGLE LIQUID [Concomitant]
     Indication: STOMATITIS
     Dosage: ADEQUEATE DOSE, AS NEEDED
     Route: 050
     Dates: start: 20200724
  9. WHITE PETROLATUM [Concomitant]
     Active Substance: PETROLATUM
     Indication: ERYTHEMA
     Dosage: ADEQUATE DOSE, ONCE OR TWICE DAILY
     Route: 061
     Dates: start: 20200727
  10. SOLDEM 3A [Concomitant]
     Active Substance: CARBOHYDRATES\POTASSIUM CHLORIDE\SODIUM CHLORIDE\SODIUM LACTATE
     Indication: FLUID REPLACEMENT
     Dosage: 1000 ML/DAY, CONTINUOUS
     Route: 041
     Dates: start: 20200724
  11. SOLU-MEDROL [Concomitant]
     Active Substance: METHYLPREDNISOLONE SODIUM SUCCINATE
     Dates: start: 20200805, end: 20200806
  12. FILGRASTIM BS [FILGRASTIM BIOSIMILAR 1] [Concomitant]
     Indication: NEUTROPHIL COUNT DECREASED
     Route: 058
     Dates: start: 20200729, end: 20200731
  13. BAKTAR [Concomitant]
     Active Substance: SULFAMETHOXAZOLE\TRIMETHOPRIM
     Indication: BACTERAEMIA
     Route: 048
     Dates: start: 20200805
  14. SOLU-MEDROL [Concomitant]
     Active Substance: METHYLPREDNISOLONE SODIUM SUCCINATE
     Dates: start: 20200727
  15. ASG-22CE [Suspect]
     Active Substance: ENFORTUMAB VEDOTIN
     Indication: NON-SMALL CELL LUNG CANCER
     Dosage: 1.25 MG/KG (93 MG), WEEKLY FOR 3 CONSECUTIVE WEEKS FOLLOWED BY 1 WEEK REST
     Route: 042
     Dates: start: 20200713, end: 20200720
  16. NEORESTAR [Concomitant]
     Active Substance: CHLORPHENIRAMINE MALEATE
     Indication: ERYTHEMA
     Route: 042
     Dates: start: 20200724
  17. POLAPREZINC [Concomitant]
     Active Substance: POLAPREZINC
     Indication: OESOPHAGITIS
     Route: 048
     Dates: start: 20200724
  18. DIACORT [Concomitant]
     Active Substance: DIFLORASONE DIACETATE
     Indication: ERYTHEMA
     Dosage: ADEQUATE DOSE, ONCE OR TWICE DAILY
     Route: 061
     Dates: start: 20200727
  19. LIDOMEX [Concomitant]
     Active Substance: PREDNISOLONE VALERATE ACETATE
     Indication: ERYTHEMA
     Dosage: ADEQUATE DOSE, ONCE OR TWICE DAILY
     Route: 061
     Dates: start: 20200727

REACTIONS (3)
  - Erythema [Recovering/Resolving]
  - Bacteraemia [Recovering/Resolving]
  - Hepatic function abnormal [Recovered/Resolved]

NARRATIVE: CASE EVENT DATE: 20200724
